FAERS Safety Report 8617317 (Version 2)
Quarter: 2014Q1

REPORT INFORMATION
  Report Type: Spontaneous
  Country: US (occurrence: None)
  Receive Date: 20120323
  Receipt Date: 20130305
  Transmission Date: 20141002
  Serious: Yes (Other)
  Sender: FDA-Public Use
  Company Number: 163-21880-11114127

PATIENT
  Age: 51 Year
  Sex: Male
  Weight: 92.08 kg

DRUGS (4)
  1. REVLIMID [Suspect]
     Indication: PLASMA CELL MYELOMA
     Dosage: 15 MG, 1 IN 1 D, PO
     Route: 048
     Dates: end: 20110518
  2. ACYCLOVIR (ACICLOVIR) (ACICLOVIR) [Suspect]
  3. ZOLOFT (SERTRALINE HYDROCHLORIDE) [Concomitant]
  4. BACTRIM [Concomitant]

REACTIONS (1)
  - White blood cell count decreased [None]
